FAERS Safety Report 9712092 (Version 1)
Quarter: 2013Q4

REPORT INFORMATION
  Report Type: Spontaneous
  Country: US (occurrence: US)
  Receive Date: 20131126
  Receipt Date: 20131126
  Transmission Date: 20140711
  Serious: Yes (Other)
  Sender: FDA-Public Use
  Company Number: US-BRISTOL-MYERS SQUIBB COMPANY-18844001

PATIENT
  Age: 32 Year
  Sex: Female

DRUGS (2)
  1. BYDUREON [Suspect]
     Dosage: NO OF INJ:2
  2. PHENTERMINE [Concomitant]

REACTIONS (2)
  - Vomiting [Unknown]
  - Asthenia [Unknown]
